FAERS Safety Report 7864638-1 (Version None)
Quarter: 2011Q4

REPORT INFORMATION
  Report Type: 
  Country: None (occurrence: None)
  Receive Date: 20111028
  Receipt Date: 20111025
  Transmission Date: 20120403
  Serious: Yes (Hospitalization, Other)
  Sender: FDA-Public Use
  Company Number: JP-ABBOTT-11P-087-0853113-00

PATIENT
  Sex: Male
  Weight: 58 kg

DRUGS (5)
  1. FERROUS CITRATE [Concomitant]
     Indication: CROHN'S DISEASE
     Dates: start: 20110517
  2. MESALAMINE [Concomitant]
     Indication: CROHN'S DISEASE
     Route: 048
     Dates: start: 20110401
  3. SOLUTIONS FOR PARENTERAL NUTRITION [Concomitant]
     Indication: CROHN'S DISEASE
     Dates: start: 20110517
  4. HUMIRA [Suspect]
     Indication: CROHN'S DISEASE
     Route: 058
     Dates: start: 20110531
  5. ISONIAZID [Concomitant]
     Indication: TUBERCULOSIS
     Dates: start: 20110517

REACTIONS (2)
  - MELAENA [None]
  - SHOCK [None]
